FAERS Safety Report 19169010 (Version 2)
Quarter: 2021Q2

REPORT INFORMATION
  Report Type: Spontaneous
  Country: CH (occurrence: CH)
  Receive Date: 20210422
  Receipt Date: 20210611
  Transmission Date: 20210717
  Serious: Yes (Death)
  Sender: FDA-Public Use
  Company Number: CH-BAYER-2021-129136

PATIENT
  Age: 73 Year
  Sex: Female

DRUGS (5)
  1. IRBESARTAN. [Concomitant]
     Active Substance: IRBESARTAN
  2. VALIUM [Concomitant]
     Active Substance: DIAZEPAM
  3. NEXAVAR [Suspect]
     Active Substance: SORAFENIB
     Indication: PANCREATIC CARCINOMA
     Dosage: 2X2
     Dates: start: 20200121
  4. NEXAVAR [Suspect]
     Active Substance: SORAFENIB
     Indication: METASTASES TO LIVER
  5. ASPIRIN CARDIO 100 MG [Concomitant]
     Active Substance: ASPIRIN

REACTIONS (1)
  - Metastases to liver [Fatal]

NARRATIVE: CASE EVENT DATE: 20200221
